FAERS Safety Report 4528829-X (Version None)
Quarter: 2004Q4

REPORT INFORMATION
  Report Type: 
  Country: None (occurrence: None)
  Receive Date: 20041216
  Receipt Date: 20041210
  Transmission Date: 20050328
  Serious: Yes (Hospitalization)
  Sender: FDA-Public Use
  Company Number: FR-GLAXOSMITHKLINE-B0360095A

PATIENT
  Age: 38 Year
  Sex: Female

DRUGS (6)
  1. TELZIR [Suspect]
     Indication: ACQUIRED IMMUNODEFICIENCY SYNDROME
     Dosage: 700MG TWICE PER DAY
     Route: 048
     Dates: start: 20041001
  2. NORVIR [Suspect]
     Indication: ACQUIRED IMMUNODEFICIENCY SYNDROME
     Route: 048
     Dates: start: 20041001, end: 20041012
  3. KALETRA [Suspect]
     Indication: ACQUIRED IMMUNODEFICIENCY SYNDROME
     Route: 048
     Dates: start: 20041001
  4. FUZEON [Suspect]
     Indication: ACQUIRED IMMUNODEFICIENCY SYNDROME
     Dosage: 80MG TWICE PER DAY
     Route: 058
     Dates: start: 20041008
  5. BACTRIM [Suspect]
     Route: 048
     Dates: start: 20041001
  6. EFFEXOR [Suspect]
     Route: 048
     Dates: start: 20041001

REACTIONS (9)
  - C-REACTIVE PROTEIN INCREASED [None]
  - COUGH [None]
  - HEART RATE INCREASED [None]
  - LUNG DISORDER [None]
  - NEUTROPHIL COUNT INCREASED [None]
  - PYREXIA [None]
  - RALES [None]
  - RESPIRATORY RATE INCREASED [None]
  - WHITE BLOOD CELL COUNT INCREASED [None]
